FAERS Safety Report 14565210 (Version 2)
Quarter: 2018Q1

REPORT INFORMATION
  Report Type: Spontaneous
  Country: GB (occurrence: GB)
  Receive Date: 20180223
  Receipt Date: 20180315
  Transmission Date: 20180509
  Serious: Yes (Death, Other)
  Sender: FDA-Public Use
  Company Number: GB-AUROBINDO-AUR-APL-2018-009205

PATIENT
  Age: 46 Year
  Sex: Female

DRUGS (10)
  1. MORPHINE [Suspect]
     Active Substance: MORPHINE
     Indication: PRODUCT USED FOR UNKNOWN INDICATION
     Dosage: ESCALATING DOSE OF ORAL MORPHINE 100ML, FOLLOWED BY 280ML AND 500ML ()
     Route: 048
  2. MIRTAZAPINE. [Suspect]
     Active Substance: MIRTAZAPINE
     Indication: PRODUCT USED FOR UNKNOWN INDICATION
     Dosage: ()
     Route: 065
  3. ORAMORPH [Suspect]
     Active Substance: MORPHINE SULFATE
     Dosage: UNK
     Dates: start: 20150629
  4. ORAMORPH [Suspect]
     Active Substance: MORPHINE SULFATE
     Indication: PRODUCT USED FOR UNKNOWN INDICATION
     Dosage: UNK
     Dates: start: 20150703
  5. ORAMORPH [Suspect]
     Active Substance: MORPHINE SULFATE
     Dosage: UNK
     Dates: start: 20150619
  6. ORAMORPH [Suspect]
     Active Substance: MORPHINE SULFATE
     Dosage: UNK
     Dates: start: 20150320
  7. PREGABALIN. [Suspect]
     Active Substance: PREGABALIN
     Indication: PRODUCT USED FOR UNKNOWN INDICATION
     Dosage: ()
     Route: 065
  8. TRAMADOL. [Suspect]
     Active Substance: TRAMADOL
     Indication: PRODUCT USED FOR UNKNOWN INDICATION
     Dosage: ()
     Route: 065
  9. ORAMORPH [Suspect]
     Active Substance: MORPHINE SULFATE
     Dosage: UNK
     Dates: start: 20150605
  10. ZOMORPH [Suspect]
     Active Substance: MORPHINE SULFATE
     Indication: PRODUCT USED FOR UNKNOWN INDICATION
     Route: 065

REACTIONS (4)
  - Toxicity to various agents [Fatal]
  - Pain [Unknown]
  - Death [Fatal]
  - Medication error [Fatal]

NARRATIVE: CASE EVENT DATE: 20150320
